FAERS Safety Report 11047903 (Version 3)
Quarter: 2015Q2

REPORT INFORMATION
  Report Type: Spontaneous
  Country: US (occurrence: US)
  Receive Date: 20150420
  Receipt Date: 20150526
  Transmission Date: 20150821
  Serious: Yes (Death, Hospitalization, Other)
  Sender: FDA-Public Use
  Company Number: US-PFIZER INC-2015131098

PATIENT
  Age: 72 Year
  Sex: Male
  Weight: 145 kg

DRUGS (2)
  1. SUTENT [Suspect]
     Active Substance: SUNITINIB MALATE
     Dosage: 20 MG, 1X/DAY
     Dates: start: 20150304, end: 20150401
  2. SUTENT [Suspect]
     Active Substance: SUNITINIB MALATE
     Indication: RENAL CANCER
     Dosage: 50 MG, UNK
     Dates: start: 20150304

REACTIONS (2)
  - Renal failure [Fatal]
  - Weight decreased [Unknown]

NARRATIVE: CASE EVENT DATE: 201503
